FAERS Safety Report 10793177 (Version 6)
Quarter: 2015Q3

REPORT INFORMATION
  Report Type: Report from Study
  Country: US (occurrence: US)
  Receive Date: 20150213
  Receipt Date: 20150702
  Transmission Date: 20151125
  Serious: Yes (Life-Threatening, Hospitalization, Other)
  Sender: FDA-Public Use
  Company Number: US-PFIZER INC-2015041839

PATIENT
  Age: 71 Year
  Sex: Male
  Weight: 84 kg

DRUGS (13)
  1. ASPIRIN BABY [Concomitant]
     Dosage: 81 MG TAB CHEW TAKE 1, QD
     Route: 048
  2. Q-10 CO-ENZYME [Concomitant]
  3. CIPRO [Concomitant]
     Active Substance: CIPROFLOXACIN HYDROCHLORIDE
  4. CRIZOTINIB [Suspect]
     Active Substance: CRIZOTINIB
     Indication: PROSTATE CANCER
     Dosage: 250 MG, 1X/DAY
     Route: 048
     Dates: start: 20141007, end: 20150128
  5. ATENOLOL. [Concomitant]
     Active Substance: ATENOLOL
     Dosage: 25 MG, 1X/DAY
     Route: 048
  6. LIPITOR [Concomitant]
     Active Substance: ATORVASTATIN CALCIUM
     Dosage: 80 MG, QHS
     Route: 048
  7. NORVASC [Concomitant]
     Active Substance: AMLODIPINE BESYLATE
     Dosage: 5 MG TABLET TAKE 1, QD
     Route: 048
  8. XTANDI [Suspect]
     Active Substance: ENZALUTAMIDE
     Indication: PROSTATE CANCER
     Dosage: 160 MG, 1X/DAY (40 MG CAPSULES,FOUR EACH MORNING)
     Route: 048
     Dates: start: 20141007, end: 20150128
  9. BROMALINE [Concomitant]
     Dosage: UNK
     Route: 048
  10. CALCIUM AND D [Concomitant]
     Dosage: [CALCIUM CARBONATE 1500 MG]/[ERGOCALCIFEROL 200 IU], BID
     Route: 048
  11. OMEPRAZOLE. [Concomitant]
     Active Substance: OMEPRAZOLE
     Dosage: 20 MG, QD
     Route: 048
  12. ZETIA [Concomitant]
     Active Substance: EZETIMIBE
     Dosage: 10 MG, QD
     Route: 048
  13. PERCOCET [Concomitant]
     Active Substance: ACETAMINOPHEN\OXYCODONE HYDROCHLORIDE
     Dosage: [OXYCODONE HYDROCHLORIDE 5 MG]/[PARACETAMOL 325 MG]

REACTIONS (3)
  - Ventricular fibrillation [Recovered/Resolved with Sequelae]
  - Cardiac arrest [Recovered/Resolved with Sequelae]
  - Electrocardiogram QT prolonged [Recovered/Resolved with Sequelae]

NARRATIVE: CASE EVENT DATE: 20150128
